FAERS Safety Report 14492262 (Version 1)
Quarter: 2018Q1

REPORT INFORMATION
  Report Type: Spontaneous
  Country: CN (occurrence: CN)
  Receive Date: 20180206
  Receipt Date: 20180206
  Transmission Date: 20180509
  Serious: Yes (Other)
  Sender: FDA-Public Use
  Company Number: CN-BAYER-2018-017898

PATIENT
  Age: 64 Year
  Sex: Female

DRUGS (1)
  1. BAYASPIRIN 100 MG [Suspect]
     Active Substance: ASPIRIN
     Indication: ARRHYTHMIA
     Dosage: 0.3 G, QD
     Route: 048
     Dates: start: 20171119, end: 20171123

REACTIONS (2)
  - Faeces discoloured [Recovering/Resolving]
  - Abdominal discomfort [Recovering/Resolving]

NARRATIVE: CASE EVENT DATE: 20171123
